FAERS Safety Report 14593280 (Version 1)
Quarter: 2018Q1

REPORT INFORMATION
  Report Type: Spontaneous
  Country: US (occurrence: US)
  Receive Date: 20180302
  Receipt Date: 20180302
  Transmission Date: 20180509
  Serious: Yes (Other)
  Sender: FDA-Public Use
  Company Number: US-PFIZER INC-2018087938

PATIENT
  Age: 81 Year
  Sex: Female

DRUGS (1)
  1. ADVIL [Suspect]
     Active Substance: IBUPROFEN
     Indication: TOOTHACHE
     Dosage: 200MG LIQUIGEL 1 BY MOUTH
     Route: 048
     Dates: start: 20180226, end: 20180226

REACTIONS (4)
  - Retching [Recovered/Resolved]
  - Oropharyngeal pain [Recovered/Resolved]
  - Foreign body in respiratory tract [Recovered/Resolved]
  - Choking [Recovered/Resolved]

NARRATIVE: CASE EVENT DATE: 20180226
